FAERS Safety Report 16596968 (Version 1)
Quarter: 2019Q3

REPORT INFORMATION
  Report Type: Spontaneous
  Country: US (occurrence: US)
  Receive Date: 20190719
  Receipt Date: 20190719
  Transmission Date: 20191004
  Serious: No
  Sender: FDA-Public Use
  Company Number: US-CIPLA LTD.-2019US01828

PATIENT

DRUGS (1)
  1. WARFARIN [Suspect]
     Active Substance: WARFARIN
     Indication: PRODUCT USED FOR UNKNOWN INDICATION
     Dosage: UNK (INVAGEN MANUFACTURER)
     Route: 065

REACTIONS (3)
  - Product substitution issue [Unknown]
  - Anticoagulation drug level below therapeutic [Recovered/Resolved]
  - Drug ineffective [Unknown]
